FAERS Safety Report 18681709 (Version 2)
Quarter: 2024Q1

REPORT INFORMATION
  Report Type: Spontaneous
  Country: FR (occurrence: FR)
  Receive Date: 20201230
  Receipt Date: 20240312
  Transmission Date: 20240410
  Serious: Yes (Life-Threatening)
  Sender: FDA-Public Use
  Company Number: None

PATIENT
  Age: 48 Year
  Sex: Male
  Weight: 81.5 kg

DRUGS (14)
  1. RAMIPRIL [Suspect]
     Active Substance: RAMIPRIL
     Indication: Product used for unknown indication
     Route: 048
     Dates: end: 20201117
  2. BISOPROLOL FUMARATE [Suspect]
     Active Substance: BISOPROLOL FUMARATE
     Indication: Product used for unknown indication
     Dosage: BISOPROLOL (FUMARATE DE)
     Route: 048
     Dates: end: 20201117
  3. LORMETAZEPAM [Suspect]
     Active Substance: LORMETAZEPAM
     Indication: Product used for unknown indication
     Dosage: SCORED TABLET
     Route: 048
     Dates: end: 20201117
  4. GAVISCON [Concomitant]
     Active Substance: ALUMINUM HYDROXIDE\MAGNESIUM CARBONATE
     Indication: Product used for unknown indication
     Route: 065
  5. LOPRAZOLAM [Suspect]
     Active Substance: LOPRAZOLAM
     Indication: Product used for unknown indication
     Route: 048
     Dates: end: 20201117
  6. LOXAPINE [Suspect]
     Active Substance: LOXAPINE
     Indication: Product used for unknown indication
     Route: 048
     Dates: end: 20201117
  7. LERCANIDIPINE [Suspect]
     Active Substance: LERCANIDIPINE
     Indication: Product used for unknown indication
     Route: 048
     Dates: end: 20201117
  8. FOLIC ACID [Suspect]
     Active Substance: FOLIC ACID
     Indication: Product used for unknown indication
     Dosage: ACIDE FOLIQUE
     Route: 048
     Dates: end: 20201117
  9. FLUTICASONE FUROATE\VILANTEROL TRIFENATATE [Suspect]
     Active Substance: FLUTICASONE FUROATE\VILANTEROL TRIFENATATE
     Indication: Chronic obstructive pulmonary disease
     Route: 055
     Dates: end: 20201117
  10. PANTOPRAZOLE [Concomitant]
     Active Substance: PANTOPRAZOLE
     Indication: Product used for unknown indication
     Route: 065
  11. ALBUTEROL [Suspect]
     Active Substance: ALBUTEROL
     Indication: Chronic obstructive pulmonary disease
     Route: 055
     Dates: end: 20201117
  12. VALIUM [Suspect]
     Active Substance: DIAZEPAM
     Indication: Product used for unknown indication
     Route: 048
     Dates: end: 20201123
  13. INNOVAIR [Concomitant]
     Active Substance: BECLOMETHASONE DIPROPIONATE\FORMOTEROL
     Indication: Product used for unknown indication
     Route: 065
  14. SUBUTEX [Suspect]
     Active Substance: BUPRENORPHINE HYDROCHLORIDE
     Indication: Drug dependence
     Route: 048

REACTIONS (5)
  - Alanine aminotransferase increased [Recovering/Resolving]
  - Somnolence [Recovering/Resolving]
  - Blood bilirubin increased [Recovered/Resolved]
  - Miosis [Recovered/Resolved]
  - Respiratory acidosis [Recovering/Resolving]

NARRATIVE: CASE EVENT DATE: 20201117
